FAERS Safety Report 9339441 (Version 1)
Quarter: 2013Q2

REPORT INFORMATION
  Report Type: Spontaneous
  Country: US (occurrence: None)
  Receive Date: 20130605
  Receipt Date: 20130605
  Transmission Date: 20140414
  Serious: Yes (Death, Hospitalization, Other)
  Sender: FDA-Public Use
  Company Number: AUR-APL-2013-04646

PATIENT
  Age: 37 Year
  Sex: Male

DRUGS (8)
  1. METFORMIN (METFORMIN) [Suspect]
     Indication: PRODUCT USED FOR UNKNOWN INDICATION
  2. LISINOPRIL (LISINOPRIL) [Concomitant]
  3. METAMUCIL (PLANTAGO OVATA) [Concomitant]
  4. COLACE [Concomitant]
  5. VALPROIC ACID (VALPROIC ACID) [Concomitant]
  6. PALIPERIDONE (PALIPERIDONE) [Concomitant]
  7. SIMVASTATIN (SIMVASTATIN) [Concomitant]
  8. ASPIRIN (ACETYLSALICYLIC ACID) [Concomitant]

REACTIONS (20)
  - Abdominal pain [None]
  - Dizziness [None]
  - Vomiting [None]
  - Constipation [None]
  - Unresponsive to stimuli [None]
  - Agitation [None]
  - Blood pressure decreased [None]
  - Heart rate increased [None]
  - Respiratory rate increased [None]
  - Abdominal distension [None]
  - Gastrointestinal sounds abnormal [None]
  - Toxicity to various agents [None]
  - Acidosis [None]
  - Dehydration [None]
  - Renal failure [None]
  - Blood lactic acid increased [None]
  - Blood glucose increased [None]
  - Drug level increased [None]
  - Anion gap increased [None]
  - Haemodialysis [None]
